FAERS Safety Report 12974138 (Version 1)
Quarter: 2016Q4

REPORT INFORMATION
  Report Type: Report from Study
  Country: None (occurrence: US)
  Receive Date: 20161125
  Receipt Date: 20161125
  Transmission Date: 20170207
  Serious: Yes (Other)
  Sender: FDA-Public Use
  Company Number: US-ABBVIE-16K-163-1788793-00

PATIENT
  Age: 63 Year
  Sex: Female

DRUGS (1)
  1. HUMIRA [Suspect]
     Active Substance: ADALIMUMAB
     Indication: RHEUMATOID ARTHRITIS
     Route: 058

REACTIONS (4)
  - Oesophageal dilation procedure [Recovered/Resolved]
  - Dysphonia [Not Recovered/Not Resolved]
  - Post procedural complication [Not Recovered/Not Resolved]
  - Oesophagogastroduodenoscopy [Recovered/Resolved]

NARRATIVE: CASE EVENT DATE: 201611
